FAERS Safety Report 24585234 (Version 2)
Quarter: 2025Q1

REPORT INFORMATION
  Report Type: Spontaneous
  Country: US (occurrence: US)
  Receive Date: 20241106
  Receipt Date: 20250116
  Transmission Date: 20250408
  Serious: Yes (Death)
  Sender: PFIZER
  Company Number: US-PFIZER INC-PV202400141930

PATIENT
  Age: 88 Year
  Sex: Female
  Weight: 50.6 kg

DRUGS (3)
  1. IBRANCE [Suspect]
     Active Substance: PALBOCICLIB
     Indication: Breast cancer female
     Route: 048
     Dates: start: 2022
  2. FULVESTRANT [Concomitant]
     Active Substance: FULVESTRANT
     Dosage: UNK UNK, MONTHLY
  3. FASLODEX [Concomitant]
     Active Substance: FULVESTRANT
     Dates: start: 2022

REACTIONS (3)
  - Death [Fatal]
  - Poor quality sleep [Unknown]
  - Decreased appetite [Unknown]

NARRATIVE: CASE EVENT DATE: 20250107
